FAERS Safety Report 24361883 (Version 2)
Quarter: 2024Q4

REPORT INFORMATION
  Report Type: Spontaneous
  Country: US (occurrence: US)
  Receive Date: 20240925
  Receipt Date: 20241114
  Transmission Date: 20250115
  Serious: No
  Sender: SLATE RUN
  Company Number: US-SLATERUN-2024SRSPO00145

PATIENT
  Age: 36 Year
  Sex: Female
  Weight: 160 kg

DRUGS (6)
  1. BUPROPION [Suspect]
     Active Substance: BUPROPION
     Indication: Depression
     Route: 048
     Dates: start: 2024, end: 2024
  2. BUPROPION [Suspect]
     Active Substance: BUPROPION
     Route: 065
     Dates: start: 2024
  3. BUPROPION [Suspect]
     Active Substance: BUPROPION
  4. BUPROPION [Suspect]
     Active Substance: BUPROPION
  5. LEVOTHYROXINE [Concomitant]
     Active Substance: LEVOTHYROXINE
     Indication: Product used for unknown indication
     Route: 065
  6. VITAMIN D [Concomitant]
     Active Substance: VITAMIN D NOS
     Indication: Product used for unknown indication
     Route: 065

REACTIONS (10)
  - Urine odour abnormal [Unknown]
  - Hunger [Unknown]
  - Fatigue [Unknown]
  - Somnolence [Recovered/Resolved]
  - Headache [Unknown]
  - Dizziness [Unknown]
  - Nausea [Unknown]
  - Condition aggravated [Recovered/Resolved]
  - Product substitution issue [Unknown]
  - Product odour abnormal [Unknown]

NARRATIVE: CASE EVENT DATE: 20240101
